FAERS Safety Report 21224052 (Version 1)
Quarter: 2022Q3

REPORT INFORMATION
  Report Type: Spontaneous
  Country: US (occurrence: US)
  Receive Date: 20220817
  Receipt Date: 20220817
  Transmission Date: 20221026
  Serious: No
  Sender: FDA-Public Use
  Company Number: US-SA-2022MK000049

PATIENT
  Age: 63 Year
  Weight: 72.640 kg

DRUGS (3)
  1. AFREZZA [Suspect]
     Active Substance: INSULIN HUMAN
     Indication: Type 1 diabetes mellitus
     Dosage: 4-12 UNITS BEFORE MEALS
     Dates: start: 202102
  2. HUMALOG [Concomitant]
     Active Substance: INSULIN LISPRO
     Indication: Type 1 diabetes mellitus
     Dosage: 7 UNITS SUB-Q OVER 24 HOURS (0.02 UNITS EVERY 30) VIA OMNIPOD AND SLIDING SCALE BOLUS AT MEALTIMES
     Route: 058
     Dates: start: 202107
  3. LENVIMA [Concomitant]
     Active Substance: LENVATINIB
     Indication: Thyroid cancer stage IV
     Route: 048
     Dates: start: 2018

REACTIONS (2)
  - Intentional device use issue [Unknown]
  - Drug ineffective [Unknown]
